FAERS Safety Report 8098837-3 (Version None)
Quarter: 2012Q1

REPORT INFORMATION
  Report Type: 
  Country: None (occurrence: None)
  Receive Date: 20120129
  Receipt Date: 20110923
  Transmission Date: 20120608
  Serious: No
  Sender: FDA-Public Use
  Company Number: US-ABBOTT-11P-163-0857486-00

PATIENT
  Age: 65 Year
  Sex: Male

DRUGS (2)
  1. UNKNOWN STATIN [Concomitant]
     Indication: PRODUCT USED FOR UNKNOWN INDICATION
  2. HUMIRA [Suspect]
     Indication: CROHN'S DISEASE
     Dates: start: 20110501

REACTIONS (6)
  - ANAL PRURITUS [None]
  - RECTAL SPASM [None]
  - FURUNCLE [None]
  - CROHN'S DISEASE [None]
  - INCORRECT STORAGE OF DRUG [None]
  - DIARRHOEA [None]
